FAERS Safety Report 12999333 (Version 3)
Quarter: 2017Q1

REPORT INFORMATION
  Report Type: Spontaneous
  Country: US (occurrence: US)
  Receive Date: 20161205
  Receipt Date: 20170224
  Transmission Date: 20170428
  Serious: Yes (Life-Threatening, Hospitalization)
  Sender: FDA-Public Use
  Company Number: US-JNJFOC-20161203251

PATIENT
  Age: 18 Year
  Sex: Male
  Weight: 103.42 kg

DRUGS (9)
  1. REMICADE [Suspect]
     Active Substance: INFLIXIMAB
     Indication: CROHN^S DISEASE
     Dosage: TOTAL DOSE: 1000MG
     Route: 042
     Dates: start: 20130122
  2. VITAMIN D [Concomitant]
     Active Substance: CHOLECALCIFEROL
     Indication: VITAMIN D DEFICIENCY
     Route: 065
  3. VITA B12 [Concomitant]
     Indication: VITAMIN B12 DEFICIENCY
     Route: 065
  4. IMURAN [Suspect]
     Active Substance: AZATHIOPRINE
     Indication: CROHN^S DISEASE
     Route: 048
     Dates: start: 201402
  5. ASA [Concomitant]
     Active Substance: ASPIRIN
     Indication: ANTICOAGULANT THERAPY
     Route: 065
  6. ASA [Concomitant]
     Active Substance: ASPIRIN
     Indication: THROMBOSIS
     Route: 065
  7. REMICADE [Suspect]
     Active Substance: INFLIXIMAB
     Indication: CROHN^S DISEASE
     Route: 042
     Dates: start: 20130131, end: 20161031
  8. VITAMIN D3 [Concomitant]
     Active Substance: CHOLECALCIFEROL
     Indication: VITAMIN D DEFICIENCY
     Route: 065
     Dates: start: 20160712
  9. IMURAN [Suspect]
     Active Substance: AZATHIOPRINE
     Indication: IMMUNOSUPPRESSION
     Route: 048
     Dates: start: 201402

REACTIONS (6)
  - Off label use [Unknown]
  - Leukaemia [Unknown]
  - Colectomy [Unknown]
  - Incorrect dose administered [Unknown]
  - Stoma obstruction [Unknown]
  - Product use issue [Unknown]

NARRATIVE: CASE EVENT DATE: 20130122
